FAERS Safety Report 20203207 (Version 1)
Quarter: 2021Q4

REPORT INFORMATION
  Report Type: Spontaneous
  Country: KR (occurrence: KR)
  Receive Date: 20211218
  Receipt Date: 20211218
  Transmission Date: 20220304
  Serious: Yes (Other)
  Sender: FDA-Public Use
  Company Number: KR-009507513-2112KOR006449

PATIENT
  Age: 63 Year
  Sex: Female
  Weight: 54 kg

DRUGS (16)
  1. PREVYMIS [Suspect]
     Active Substance: LETERMOVIR
     Indication: Antiviral prophylaxis
     Dosage: ONCE DAILY
     Route: 048
     Dates: start: 20210215, end: 20210323
  2. BARACLE [Concomitant]
     Indication: Viral hepatitis carrier
     Dosage: 1 TABLET, QD
     Route: 048
     Dates: start: 20210205
  3. CRESNON [Concomitant]
     Indication: Dyslipidaemia
     Dosage: 1 TABLET, QD
     Route: 048
     Dates: start: 20210120
  4. DIABEX [Concomitant]
     Active Substance: METFORMIN HYDROCHLORIDE
     Indication: Diabetes mellitus
     Dosage: 1 DOSAGE FORM, BID
     Route: 048
     Dates: start: 20210319
  5. DISGREN [TRIFLUSAL] [Concomitant]
     Indication: Thalamic infarction
     Dosage: 1 CAPSULE, 2/DAY
     Dates: start: 20201215
  6. FOLIC ACID [Concomitant]
     Active Substance: FOLIC ACID
     Indication: Anaemia prophylaxis
     Dosage: 1 TABLET, QD
     Route: 048
     Dates: start: 20200831
  7. K CAB [Concomitant]
     Indication: Gastrooesophageal reflux prophylaxis
     Dosage: 1 TABLET, QD
     Route: 048
     Dates: start: 20210202
  8. RYZODEG 70/30 [Concomitant]
     Active Substance: INSULIN ASPART\INSULIN DEGLUDEC
     Indication: Diabetes mellitus
     Dosage: UNK, QD
     Route: 058
     Dates: start: 20210319
  9. SULFAMETHOXAZOLE\TRIMETHOPRIM [Concomitant]
     Active Substance: SULFAMETHOXAZOLE\TRIMETHOPRIM
     Indication: Infection prophylaxis
     Dosage: 1 TABLET, QD
     Route: 048
     Dates: start: 20210203
  10. AMLODIPINE BESYLATE\HYDROCHLOROTHIAZIDE\OLMESARTAN MEDOXOMIL [Concomitant]
     Active Substance: AMLODIPINE BESYLATE\HYDROCHLOROTHIAZIDE\OLMESARTAN MEDOXOMIL
     Indication: Hypertension
     Dosage: 1 DOSAGE FORM, QD
     Route: 048
     Dates: start: 20201023
  11. AMLODIPINE BESYLATE\OLMESARTAN MEDOXOMIL [Concomitant]
     Active Substance: AMLODIPINE BESYLATE\OLMESARTAN MEDOXOMIL
     Indication: Hypertension
     Dosage: 1 DOSAGE FORM, QD
     Route: 048
     Dates: start: 20210308
  12. TACROBELL [TACROLIMUS] [Concomitant]
     Indication: Prophylaxis against graft versus host disease
     Dosage: 1 DOSAGE FORM, BID
     Route: 048
     Dates: start: 20210311
  13. TACROBELL [TACROLIMUS] [Concomitant]
     Indication: Prophylaxis against graft versus host disease
  14. TRESIBA [Concomitant]
     Active Substance: INSULIN DEGLUDEC
     Indication: Diabetes mellitus
     Dosage: UNK, QD
     Route: 058
     Dates: start: 20210307
  15. URSODIOL [Concomitant]
     Active Substance: URSODIOL
     Indication: Prophylaxis
     Dosage: 100 MILLIGRAM, TID
     Route: 048
     Dates: start: 20200831
  16. ZEMIGLO [Concomitant]
     Indication: Diabetes mellitus
     Dosage: 1 TABLET, QD
     Route: 048
     Dates: start: 20201223

REACTIONS (3)
  - Cytomegalovirus colitis [Unknown]
  - Cytomegalovirus gastroenteritis [Unknown]
  - Drug ineffective [Unknown]

NARRATIVE: CASE EVENT DATE: 20210503
